FAERS Safety Report 9553800 (Version 1)
Quarter: 2013Q3

REPORT INFORMATION
  Report Type: Spontaneous
  Country: US (occurrence: None)
  Receive Date: 20130912
  Receipt Date: 20130912
  Transmission Date: 20140515
  Serious: Yes (Other)
  Sender: FDA-Public Use
  Company Number: 2011AP001577

PATIENT
  Age: 06 Year
  Sex: Male

DRUGS (3)
  1. CARBIDOPA AND LEVODOPA [Suspect]
     Indication: DYSTONIA
  2. SELEGILINE [Concomitant]
  3. TRIHEXYPHENIDYL [Concomitant]

REACTIONS (1)
  - Dyskinesia [None]
